FAERS Safety Report 8612772-0 (Version None)
Quarter: 2012Q3

REPORT INFORMATION
  Report Type: 
  Country: None (occurrence: None)
  Receive Date: 20120822
  Receipt Date: 20110902
  Transmission Date: 20120928
  Serious: No
  Sender: FDA-Public Use
  Company Number: US-ASTRAZENECA-2011SE53020

PATIENT

DRUGS (3)
  1. SYMBICORT [Suspect]
     Route: 055
  2. HERBAL MEDICINES [Concomitant]
     Indication: HYPERTENSION
  3. VITAMIN TAB [Concomitant]

REACTIONS (3)
  - BALANCE DISORDER [None]
  - MUSCULAR WEAKNESS [None]
  - MUSCLE SPASMS [None]
